FAERS Safety Report 7639022-6 (Version None)
Quarter: 2011Q3

REPORT INFORMATION
  Report Type: 
  Country: None (occurrence: None)
  Receive Date: 20110727
  Receipt Date: 20110725
  Transmission Date: 20111222
  Serious: Yes (Hospitalization, Other)
  Sender: FDA-Public Use
  Company Number: US-PFIZER INC-2011085203

PATIENT
  Sex: Female

DRUGS (2)
  1. CHANTIX [Suspect]
     Dosage: CONTINUING MONTH PACK (1 REFILL)
     Dates: start: 20071026, end: 20071126
  2. CHANTIX [Suspect]
     Indication: SMOKING CESSATION THERAPY
     Dosage: STARTER PACK, CONTINUING MONTH PACK (1 REFILL)
     Dates: start: 20070906, end: 20071019

REACTIONS (4)
  - DEPRESSION [None]
  - PANIC ATTACK [None]
  - SUICIDAL IDEATION [None]
  - ANXIETY [None]
